FAERS Safety Report 8456886-7 (Version None)
Quarter: 2012Q2

REPORT INFORMATION
  Report Type: 
  Country: None (occurrence: None)
  Receive Date: 20120621
  Receipt Date: 20120611
  Transmission Date: 20120825
  Serious: No
  Sender: FDA-Public Use
  Company Number: US-BAYER-2012-059088

PATIENT

DRUGS (2)
  1. ASPIRIN [Suspect]
     Indication: BACK PAIN
     Dosage: 2 DF, UNK
  2. ALEVE (CAPLET) [Suspect]
     Indication: BACK PAIN
     Dosage: 2 DF, UNK

REACTIONS (1)
  - BACK PAIN [None]
